FAERS Safety Report 10568235 (Version 1)
Quarter: 2014Q4

REPORT INFORMATION
  Report Type: Spontaneous
  Country: US (occurrence: None)
  Receive Date: 20141105
  Receipt Date: 20141105
  Transmission Date: 20150529
  Serious: Yes (Other)
  Sender: FDA-Public Use
  Company Number: None

PATIENT
  Age: 47 Year
  Sex: Male
  Weight: 70.31 kg

DRUGS (1)
  1. LEVETIRACETAM EXTENDED-RELEASE [Suspect]
     Active Substance: LEVETIRACETAM
     Dosage: 1000 MG QHS
     Route: 048
     Dates: start: 20141020, end: 20141028

REACTIONS (7)
  - Chest discomfort [None]
  - Anxiety [None]
  - Insomnia [None]
  - Seizure [None]
  - Partial seizures [None]
  - Anger [None]
  - Product substitution issue [None]

NARRATIVE: CASE EVENT DATE: 20141028
